FAERS Safety Report 21082124 (Version 1)
Quarter: 2022Q3

REPORT INFORMATION
  Report Type: Spontaneous
  Country: JP (occurrence: JP)
  Receive Date: 20220714
  Receipt Date: 20220714
  Transmission Date: 20221027
  Serious: Yes (Other)
  Sender: FDA-Public Use
  Company Number: JP-PFIZER INC-PV202200015606

PATIENT
  Age: 56 Year
  Sex: Male

DRUGS (6)
  1. BEVACIZUMAB [Suspect]
     Active Substance: BEVACIZUMAB
     Indication: Hepatocellular carcinoma
     Dosage: UNK
  2. CISPLATIN [Suspect]
     Active Substance: CISPLATIN
     Indication: Hepatocellular carcinoma
     Dosage: UNK
     Route: 013
  3. EPIRUBICIN HYDROCHLORIDE [Suspect]
     Active Substance: EPIRUBICIN HYDROCHLORIDE
     Indication: Hepatocellular carcinoma
     Dosage: UNK
  4. ATEZOLIZUMAB [Suspect]
     Active Substance: ATEZOLIZUMAB
     Indication: Hepatocellular carcinoma
     Dosage: UNK
  5. MIRIPLATIN [Suspect]
     Active Substance: MIRIPLATIN
     Indication: Hepatocellular carcinoma
  6. LIPIODOL [Suspect]
     Active Substance: ETHIODIZED OIL
     Indication: Hepatocellular carcinoma

REACTIONS (2)
  - Proteinuria [Unknown]
  - Off label use [Unknown]
